FAERS Safety Report 13539181 (Version 2)
Quarter: 2024Q4

REPORT INFORMATION
  Report Type: Spontaneous
  Country: BR (occurrence: BR)
  Receive Date: 20170512
  Receipt Date: 20241127
  Transmission Date: 20250115
  Serious: Yes (Other)
  Sender: ROCHE
  Company Number: BR-002147023-PHHY2017BR066887

PATIENT

DRUGS (1)
  1. LUCENTIS [Suspect]
     Active Substance: RANIBIZUMAB
     Indication: Iris neovascularisation
     Dosage: 1.25 MG, UNK
     Route: 065

REACTIONS (4)
  - Anterior chamber disorder [Recovered/Resolved]
  - Fibrin deposition on lens postoperative [Recovered/Resolved]
  - Eye inflammation [Recovered/Resolved]
  - Off label use [Unknown]
